FAERS Safety Report 4921522-0 (Version None)
Quarter: 2006Q1

REPORT INFORMATION
  Report Type: 
  Country: None (occurrence: None)
  Receive Date: 20060222
  Receipt Date: 20060222
  Transmission Date: 20060701
  Serious: Yes (Death, Life-Threatening, Hospitalization, Disabling)
  Sender: FDA-Public Use
  Company Number: None

PATIENT
  Sex: Male

DRUGS (3)
  1. GEFITINIB 250 MG ASTRAZENECA [Suspect]
     Indication: NON-SMALL CELL LUNG CANCER
     Dosage: 250 QD PO
     Route: 048
     Dates: start: 20021204, end: 20051110
  2. ERLOTINIB 100 MG GENENTECH [Suspect]
     Indication: NON-SMALL CELL LUNG CANCER
     Dosage: 100  QD PO
     Route: 048
     Dates: start: 20050119, end: 20050123
  3. CARBO/TAXOL [Concomitant]

REACTIONS (5)
  - DIARRHOEA [None]
  - HAEMOTHORAX [None]
  - PLEURAL EFFUSION [None]
  - PULMONARY TOXICITY [None]
  - SKIN DISORDER [None]
